FAERS Safety Report 16471452 (Version 2)
Quarter: 2019Q2

REPORT INFORMATION
  Report Type: Spontaneous
  Country: DE (occurrence: DE)
  Receive Date: 20190624
  Receipt Date: 20190626
  Transmission Date: 20190711
  Serious: Yes (Life-Threatening)
  Sender: FDA-Public Use
  Company Number: DE-ANIPHARMA-2019-DE-000090

PATIENT
  Sex: Female

DRUGS (3)
  1. CLOPIDOGREL [Concomitant]
     Active Substance: CLOPIDOGREL BISULFATE
     Dosage: UNK
     Route: 065
  2. CANDESARTAN. [Suspect]
     Active Substance: CANDESARTAN
     Indication: BLOOD PRESSURE MEASUREMENT
     Dosage: 4 MG UNK
     Route: 048
  3. CRESTOR [Suspect]
     Active Substance: ROSUVASTATIN CALCIUM
     Indication: EYE DISORDER
     Dosage: 10 MG DAILY
     Route: 048
     Dates: start: 201904

REACTIONS (4)
  - Drug ineffective [Unknown]
  - Cerebral haemorrhage [Unknown]
  - Hypertension [Unknown]
  - Epistaxis [Recovered/Resolved]
